FAERS Safety Report 7768252-8 (Version None)
Quarter: 2011Q3

REPORT INFORMATION
  Report Type: 
  Country: None (occurrence: None)
  Receive Date: 20110922
  Receipt Date: 20101213
  Transmission Date: 20111222
  Serious: No
  Sender: FDA-Public Use
  Company Number: US-ASTRAZENECA-2010SE59019

PATIENT
  Sex: Female

DRUGS (3)
  1. SEROQUEL [Suspect]
     Indication: BIPOLAR DISORDER
     Route: 048
     Dates: start: 20040101
  2. SEROQUEL [Suspect]
     Route: 048
     Dates: start: 20101201
  3. SEROQUEL [Suspect]
     Route: 048
     Dates: start: 20090101

REACTIONS (13)
  - FEELING OF BODY TEMPERATURE CHANGE [None]
  - RESTLESS LEGS SYNDROME [None]
  - RHINORRHOEA [None]
  - DIARRHOEA [None]
  - IMPAIRED WORK ABILITY [None]
  - HYPERHIDROSIS [None]
  - PAIN [None]
  - DIZZINESS [None]
  - INCORRECT DOSE ADMINISTERED [None]
  - NAUSEA [None]
  - BALANCE DISORDER [None]
  - SWOLLEN TONGUE [None]
  - DRUG DOSE OMISSION [None]
